FAERS Safety Report 7263921-0 (Version None)
Quarter: 2011Q1

REPORT INFORMATION
  Report Type: 
  Country: None (occurrence: None)
  Receive Date: 20110130
  Receipt Date: 20101109
  Transmission Date: 20110831
  Serious: No
  Sender: FDA-Public Use
  Company Number: US-ABBOTT-10P-163-0684423-00

PATIENT
  Sex: Female
  Weight: 59.02 kg

DRUGS (13)
  1. HUMIRA [Suspect]
     Indication: RHEUMATOID ARTHRITIS
     Dates: start: 20101101
  2. PREDNISONE [Concomitant]
     Indication: RHEUMATOID ARTHRITIS
     Dates: start: 19950101
  3. ZETIA [Concomitant]
     Indication: BLOOD CHOLESTEROL INCREASED
     Dates: start: 20070101
  4. METHOTREXATE [Concomitant]
     Indication: RHEUMATOID ARTHRITIS
     Dates: start: 20030101
  5. CHANTIX [Concomitant]
     Indication: EX-TOBACCO USER
     Dates: start: 20101009
  6. ACTONEL [Concomitant]
     Indication: OSTEOPOROSIS
     Dates: start: 20030101
  7. COUMADIN [Concomitant]
     Indication: PERIPHERAL VASCULAR DISORDER
  8. CALCIUM [Concomitant]
     Indication: MINERAL SUPPLEMENTATION
  9. MULTI-VITAMIN [Concomitant]
     Indication: VITAMIN SUPPLEMENTATION
  10. VITAMIN D [Concomitant]
     Indication: VITAMIN SUPPLEMENTATION
  11. LIPITOR [Concomitant]
     Indication: BLOOD CHOLESTEROL INCREASED
     Dates: start: 19980101
  12. FOLIC ACID [Concomitant]
     Indication: VITAMIN SUPPLEMENTATION
     Dates: start: 20040101
  13. ASPIRIN [Concomitant]
     Indication: PERIPHERAL VASCULAR DISORDER
     Dates: start: 20070101

REACTIONS (3)
  - NAUSEA [None]
  - VOMITING [None]
  - DIARRHOEA [None]
